FAERS Safety Report 23452724 (Version 1)
Quarter: 2024Q1

REPORT INFORMATION
  Report Type: Other
  Country: FR (occurrence: FR)
  Receive Date: 20240129
  Receipt Date: 20240129
  Transmission Date: 20240410
  Serious: Yes (Hospitalization)
  Sender: FDA-Public Use
  Company Number: None

PATIENT

DRUGS (1)
  1. RUXOLITINIB [Suspect]
     Active Substance: RUXOLITINIB
     Indication: Primary myelofibrosis
     Dosage: UNK
     Route: 048
     Dates: start: 2016

REACTIONS (1)
  - Myopericarditis [Recovering/Resolving]

NARRATIVE: CASE EVENT DATE: 20231106
